FAERS Safety Report 6305070-1 (Version None)
Quarter: 2009Q3

REPORT INFORMATION
  Report Type: 
  Country: None (occurrence: None)
  Receive Date: 20090811
  Receipt Date: 20080512
  Transmission Date: 20100115
  Serious: Yes (Death, Hospitalization)
  Sender: FDA-Public Use
  Company Number: FR-PFIZER INC-2009249824

PATIENT
  Age: 51 Year

DRUGS (13)
  1. IRINOTECAN HCL [Suspect]
     Indication: GASTRIC CANCER
     Dosage: 1 CYCLE (2 COURSES)
     Dates: start: 20070528
  2. EPIRUBICIN HCL [Suspect]
     Indication: GASTRIC CANCER
     Dosage: CYCLE 1 (3 COURSES)
     Dates: start: 20060912
  3. EPIRUBICIN HCL [Suspect]
     Dosage: CYCLE 2 (3 COURSES)
     Dates: start: 20061114
  4. EPIRUBICIN HCL [Suspect]
     Dosage: CYCLE 3 (3 COURSES)
     Dates: start: 20070131
  5. EPIRUBICIN HCL [Suspect]
     Dosage: CYCLE 4 (1 COURSE)
     Dates: start: 20070419
  6. CISPLATIN [Suspect]
     Indication: GASTRIC CANCER
     Dosage: CYCLE 1 (3 COURSES)
     Dates: start: 20060912
  7. CISPLATIN [Suspect]
     Dosage: CYCLE 2  COURSES)
     Dates: start: 20061114
  8. CISPLATIN [Suspect]
     Dosage: CYCLE 3 (3 COURSES)
     Dates: start: 20070131
  9. CISPLATIN [Suspect]
     Dosage: CYCLE 4 (1 COURSE)
     Dates: start: 20070419
  10. FLUOROURACIL [Suspect]
     Indication: GASTRIC CANCER
     Dosage: 1 CYCLE (2 COURSES)
     Dates: start: 20070528
  11. XELODA [Suspect]
     Indication: GASTRIC CANCER
     Dosage: CYCLE 1 (3 COURSES)
     Dates: start: 20060912
  12. XELODA [Suspect]
     Dosage: CYCLE 2 (3 COURSES)
     Dates: start: 20061114
  13. FOLINIC ACID [Suspect]
     Indication: GASTRIC CANCER
     Dosage: 1 CYCLE (2 COURSES)
     Dates: start: 20070528

REACTIONS (3)
  - GENERAL PHYSICAL HEALTH DETERIORATION [None]
  - PAIN [None]
  - PYREXIA [None]
